FAERS Safety Report 5096761-1 (Version None)
Quarter: 2006Q3

REPORT INFORMATION
  Report Type: 
  Country: None (occurrence: None)
  Receive Date: 20060831
  Receipt Date: 20060818
  Transmission Date: 20061208
  Serious: Yes (Other)
  Sender: FDA-Public Use
  Company Number: 2006086161

PATIENT
  Age: 69 Year
  Sex: Male
  Weight: 88.4514 kg

DRUGS (5)
  1. SUTENT [Suspect]
     Indication: METASTATIC RENAL CELL CARCINOMA
     Dosage: 50 MG (50 MG,FREQUENCY: CYCLIC INTERVAL: DAILY), ORAL
     Route: 048
     Dates: start: 20060606
  2. ALL OTHER THERAPEUTIC PRODUCTS (ALL OTHER THERAPEUTIC PRODUCTS) [Suspect]
     Indication: METASTATIC RENAL CELL CARCINOMA
     Dates: start: 20060201
  3. ERYTHROPOIETIN (ERYTHROPOIETIN) [Suspect]
     Indication: SIDEROBLASTIC ANAEMIA
  4. ARANESP [Suspect]
     Indication: DRUG USE FOR UNKNOWN INDICATION
     Dosage: 300 MG, EVERY THREE WEEKS
  5. EXCEDRIN (MIGRAINE) [Concomitant]

REACTIONS (9)
  - DIARRHOEA [None]
  - EYE SWELLING [None]
  - METASTASES TO LUNG [None]
  - METASTATIC RENAL CELL CARCINOMA [None]
  - NEOPLASM RECURRENCE [None]
  - OEDEMA PERIPHERAL [None]
  - SIDEROBLASTIC ANAEMIA [None]
  - SWELLING FACE [None]
  - WHITE BLOOD CELL COUNT DECREASED [None]
